FAERS Safety Report 11661615 (Version 1)
Quarter: 2015Q4

REPORT INFORMATION
  Report Type: Spontaneous
  Country: US (occurrence: US)
  Receive Date: 20151026
  Receipt Date: 20151026
  Transmission Date: 20160304
  Serious: No
  Sender: FDA-Public Use
  Company Number: US-PFIZER INC-2015357896

PATIENT
  Age: 45 Year
  Sex: Male

DRUGS (2)
  1. DEPO-TESTOSTERONE [Suspect]
     Active Substance: TESTOSTERONE CYPIONATE
     Indication: BLOOD TESTOSTERONE DECREASED
     Dosage: 150 MG, CYCLIC  EVERY TWO WEEKS
     Route: 030
     Dates: start: 201501, end: 2015
  2. DEPO-TESTOSTERONE [Suspect]
     Active Substance: TESTOSTERONE CYPIONATE
     Dosage: 200 MG, CYCLIC EVERY TWO WEEKS
     Route: 030
     Dates: start: 2015

REACTIONS (3)
  - Drug ineffective [Unknown]
  - Drug effect increased [Unknown]
  - Food interaction [Unknown]
